FAERS Safety Report 9841482 (Version 2)
Quarter: 2013Q4

REPORT INFORMATION
  Report Type: Spontaneous
  Country: US (occurrence: None)
  Receive Date: 20131223
  Receipt Date: 20131223
  Transmission Date: 20140711
  Serious: Yes (Other)
  Sender: FDA-Public Use
  Company Number: 219562LEO

PATIENT
  Sex: Female

DRUGS (1)
  1. PICATO (0.05%, GEL) [Suspect]
     Indication: ACTINIC KERATOSIS
     Route: 061

REACTIONS (4)
  - Application site reaction [None]
  - Squamous cell carcinoma of skin [None]
  - Incorrect dose administered [None]
  - Drug administered at inappropriate site [None]
